FAERS Safety Report 18981101 (Version 1)
Quarter: 2021Q1

REPORT INFORMATION
  Report Type: Spontaneous
  Country: DE (occurrence: DE)
  Receive Date: 20210308
  Receipt Date: 20210308
  Transmission Date: 20210420
  Serious: Yes (Death, Hospitalization, Other)
  Sender: FDA-Public Use
  Company Number: DE-TAKEDA-2021TUS014513

PATIENT
  Sex: Female

DRUGS (7)
  1. VOLTAREN FORTE [DICLOFENAC DIETHYLAMINE] [Suspect]
     Active Substance: DICLOFENAC DIETHYLAMINE
     Indication: BACK PAIN
     Dosage: UNK
     Route: 065
  2. VOLTAREN [DICLOFENAC] [Suspect]
     Active Substance: DICLOFENAC SODIUM
     Indication: BACK PAIN
     Dosage: UNK
     Route: 065
  3. BORTEZOMIB. [Suspect]
     Active Substance: BORTEZOMIB
     Indication: CHEMOTHERAPY
     Dosage: UNK
     Route: 065
  4. VOLTARENDOLO [Suspect]
     Active Substance: DICLOFENAC POTASSIUM
     Indication: BACK PAIN
     Dosage: UNK
     Route: 065
  5. VOLTAROL HEAT PATCH [Suspect]
     Active Substance: DEVICE
     Indication: BACK PAIN
     Dosage: UNK
     Route: 065
  6. VOLTAROL HEAT PATCH [Suspect]
     Active Substance: DEVICE
     Dosage: UNK
     Route: 065
  7. VOLTAREN [Suspect]
     Active Substance: DICLOFENAC SODIUM
     Indication: BACK PAIN
     Dosage: UNK
     Route: 065

REACTIONS (17)
  - Blood test abnormal [Unknown]
  - Thoracic vertebral fracture [Unknown]
  - Necrosis [Unknown]
  - Cardiovascular disorder [Unknown]
  - Plasmacytoma [Unknown]
  - Acute kidney injury [Fatal]
  - Drug abuse [Unknown]
  - Social problem [Unknown]
  - Peripheral swelling [Unknown]
  - Impaired healing [Unknown]
  - Bed rest [Fatal]
  - Asthenia [Fatal]
  - Febrile infection [Unknown]
  - Blood pressure abnormal [Unknown]
  - Suspected COVID-19 [Fatal]
  - Weight decreased [Fatal]
  - Pulse abnormal [Unknown]
